FAERS Safety Report 20756072 (Version 1)
Quarter: 2022Q2

REPORT INFORMATION
  Report Type: Report from Study
  Country: US (occurrence: None)
  Receive Date: 20220427
  Receipt Date: 20220427
  Transmission Date: 20220721
  Serious: Yes (Hospitalization, Other)
  Sender: FDA-Public Use
  Company Number: 2022A158309

PATIENT
  Sex: Female

DRUGS (1)
  1. CALQUENCE [Suspect]
     Active Substance: ACALABRUTINIB
     Indication: Chronic lymphocytic leukaemia
     Route: 048

REACTIONS (9)
  - Blood sodium decreased [Unknown]
  - White blood cell count abnormal [Unknown]
  - Blood pressure abnormal [Unknown]
  - Blood uric acid increased [Unknown]
  - Blood thyroid stimulating hormone decreased [Unknown]
  - Contusion [Unknown]
  - Back pain [Unknown]
  - Pulmonary congestion [Unknown]
  - Seasonal allergy [Unknown]
